FAERS Safety Report 12774584 (Version 4)
Quarter: 2017Q1

REPORT INFORMATION
  Report Type: Spontaneous
  Country: US (occurrence: US)
  Receive Date: 20160923
  Receipt Date: 20170124
  Transmission Date: 20170428
  Serious: Yes (Other)
  Sender: FDA-Public Use
  Company Number: US-ABBVIE-16K-163-1682583-00

PATIENT
  Sex: Female

DRUGS (2)
  1. HUMIRA [Suspect]
     Active Substance: ADALIMUMAB
     Indication: HIDRADENITIS
     Route: 058
  2. ZINC. [Concomitant]
     Active Substance: ZINC
     Indication: MINERAL SUPPLEMENTATION

REACTIONS (9)
  - Hysterectomy [Unknown]
  - Feeling abnormal [Unknown]
  - Secretion discharge [Unknown]
  - Impaired healing [Unknown]
  - Drug ineffective [Unknown]
  - Hordeolum [Not Recovered/Not Resolved]
  - Hidradenitis [Unknown]
  - Diabetic complication [Unknown]
  - Purulence [Unknown]
